FAERS Safety Report 5265074-7 (Version None)
Quarter: 2007Q1

REPORT INFORMATION
  Report Type: 
  Country: None (occurrence: None)
  Receive Date: 20061121
  Receipt Date: 20060914
  Transmission Date: 20070707
  Serious: No
  Sender: FDA-Public Use
  Company Number: TPA2006A01286

PATIENT
  Age: 49 Year
  Sex: Female
  Weight: 81.6475 kg

DRUGS (4)
  1. ROZEREM [Suspect]
     Indication: INSOMNIA
     Dosage: 8 MG, HS, PER ORAL
     Route: 048
     Dates: start: 20060728, end: 20060804
  2. WELLBUTRIN [Concomitant]
  3. SYNTHROID [Concomitant]
  4. LEVOXYL [Concomitant]

REACTIONS (3)
  - HANGOVER [None]
  - INSOMNIA [None]
  - NEGATIVE THOUGHTS [None]
